FAERS Safety Report 6366973-5 (Version None)
Quarter: 2009Q3

REPORT INFORMATION
  Report Type: 
  Country: None (occurrence: None)
  Receive Date: 20090915
  Receipt Date: 20090831
  Transmission Date: 20100115
  Serious: Yes (Death)
  Sender: FDA-Public Use
  Company Number: 076

PATIENT
  Age: 20 Year
  Sex: Male

DRUGS (2)
  1. CLOZAPINE [Suspect]
     Indication: SCHIZOPHRENIA
     Dosage: 900 MG PO DAILY
     Route: 048
  2. AMISULPIRIDE [Concomitant]

REACTIONS (6)
  - ABDOMINAL PAIN [None]
  - CONDITION AGGRAVATED [None]
  - CONSTIPATION [None]
  - FALL [None]
  - INTESTINAL INFARCTION [None]
  - INTESTINAL ISCHAEMIA [None]
